FAERS Safety Report 4891977-9 (Version None)
Quarter: 2006Q1

REPORT INFORMATION
  Report Type: 
  Country: None (occurrence: None)
  Receive Date: 20060124
  Receipt Date: 20060124
  Transmission Date: 20060701
  Serious: Yes (Life-Threatening, Hospitalization)
  Sender: FDA-Public Use
  Company Number: None

PATIENT
  Age: 41 Year
  Sex: Female
  Weight: 69 kg

DRUGS (38)
  1. THYMOGLOBULIN [Suspect]
     Indication: TRANSPLANT REJECTION
     Dosage: 50 MG Q DAILY IV -042
     Route: 042
     Dates: start: 20060106
  2. THYMOGLOBULIN [Suspect]
     Indication: TRANSPLANT REJECTION
     Dosage: 50 MG Q DAILY IV -042
     Route: 042
     Dates: start: 20060107
  3. HEPARIN [Concomitant]
  4. CELLCEPT [Concomitant]
  5. PROGRAF [Concomitant]
  6. PREVACID [Concomitant]
  7. LASIX [Concomitant]
  8. AMPHOGEL [Concomitant]
  9. METHYLPREDNISOLONE [Concomitant]
  10. POTASSIUM CHLORIDE [Concomitant]
  11. HUMULIN R [Concomitant]
  12. KCL ELIXER [Concomitant]
  13. D5W 1/2 NACL [Concomitant]
  14. VERSED [Concomitant]
  15. FENTANYL [Concomitant]
  16. PROVENTIL NEB [Concomitant]
  17. APAP TAB [Concomitant]
  18. ZOSYN [Concomitant]
  19. PLATELETS [Concomitant]
  20. ALBUMIN (HUMAN) [Concomitant]
  21. REGLAN [Concomitant]
  22. FLUCONAZOLE [Concomitant]
  23. ZOFRAN [Concomitant]
  24. HYDRALAZINE [Concomitant]
  25. BENADRYL [Concomitant]
  26. CASPOFUNGIN [Concomitant]
  27. VORICONAZOLE [Concomitant]
  28. DOCUSATE [Concomitant]
  29. LASIX [Concomitant]
  30. FILGRASTIM [Concomitant]
  31. MAGNESIUM SULFATE [Concomitant]
  32. POTASSIUM PHOSPHATES [Concomitant]
  33. PRIMAXIN [Concomitant]
  34. LEVAQUIN [Concomitant]
  35. CYTOGAM [Concomitant]
  36. AMBISOME [Concomitant]
  37. PROVENTIL NEB [Concomitant]
  38. THYMOGLOBULIN (RABBIT) [Concomitant]

REACTIONS (1)
  - THROMBOCYTOPENIA [None]
